FAERS Safety Report 5019638-6 (Version None)
Quarter: 2006Q2

REPORT INFORMATION
  Report Type: 
  Country: None (occurrence: None)
  Receive Date: 20060601
  Receipt Date: 20060520
  Transmission Date: 20061013
  Serious: Yes (Other)
  Sender: FDA-Public Use
  Company Number: 2006067215

PATIENT
  Age: 29 Year
  Sex: Male

DRUGS (4)
  1. NEURONTIN [Suspect]
     Indication: CONVULSION
     Dosage: 2400 MG (800 MG, 3 IN 1 D)
  2. LYRICA [Suspect]
     Indication: CONVULSION
     Dosage: 150 MG (150 MG, 1 IN 1 D), ORAL
     Route: 048
     Dates: start: 20060419, end: 20060518
  3. ABILIFY [Suspect]
     Indication: ABNORMAL BEHAVIOUR
     Dosage: 5 MG (5 MG, 1 D)
     Dates: start: 20060420, end: 20060501
  4. TOPAMAX [Concomitant]

REACTIONS (16)
  - ABASIA [None]
  - ASTHENIA [None]
  - BALANCE DISORDER [None]
  - CONSTIPATION [None]
  - COORDINATION ABNORMAL [None]
  - DIARRHOEA [None]
  - DYSPNOEA EXERTIONAL [None]
  - EATING DISORDER [None]
  - FAECAL INCONTINENCE [None]
  - FLATULENCE [None]
  - HEADACHE [None]
  - HYPERHIDROSIS [None]
  - INSOMNIA [None]
  - JOINT SWELLING [None]
  - MUSCULAR WEAKNESS [None]
  - URINARY INCONTINENCE [None]
